FAERS Safety Report 17529118 (Version 2)
Quarter: 2021Q1

REPORT INFORMATION
  Report Type: Spontaneous
  Country: US (occurrence: US)
  Receive Date: 20200311
  Receipt Date: 20210304
  Transmission Date: 20210419
  Serious: Yes (Hospitalization, Disabling)
  Sender: FDA-Public Use
  Company Number: US-BAYER-2020-037346

PATIENT
  Age: 34 Year
  Sex: Female

DRUGS (2)
  1. MIRENA [Suspect]
     Active Substance: LEVONORGESTREL
     Indication: CONTRACEPTION
     Dosage: 20 ?G PER DAY, CONT
     Route: 015
     Dates: start: 20130201, end: 20191122
  2. PRENATAL VITAMINS [MINERALS NOS;VITAMINS NOS] [Concomitant]
     Active Substance: MINERALS\VITAMINS

REACTIONS (7)
  - Presyncope [Recovering/Resolving]
  - Blood oestrogen decreased [None]
  - Adverse event [Recovering/Resolving]
  - Complication of device removal [None]
  - Fatigue [Recovering/Resolving]
  - Vomiting [Recovering/Resolving]
  - Device use issue [None]

NARRATIVE: CASE EVENT DATE: 202002
